FAERS Safety Report 6506868-7 (Version None)
Quarter: 2009Q4

REPORT INFORMATION
  Report Type: 
  Country: None (occurrence: None)
  Receive Date: 20091221
  Receipt Date: 20091211
  Transmission Date: 20100525
  Serious: Yes (Hospitalization)
  Sender: FDA-Public Use
  Company Number: US-JNJFOC-20091204377

PATIENT
  Sex: Male
  Weight: 78.93 kg

DRUGS (1)
  1. REMICADE [Suspect]
     Indication: CROHN'S DISEASE
     Dosage: 3 DOSES
     Route: 042

REACTIONS (2)
  - HYPOKINESIA [None]
  - THROMBOSIS [None]
